FAERS Safety Report 12586557 (Version 1)
Quarter: 2016Q3

REPORT INFORMATION
  Report Type: Spontaneous
  Country: US (occurrence: None)
  Receive Date: 20160722
  Receipt Date: 20160722
  Transmission Date: 20161109
  Serious: No
  Sender: FDA-Public Use
  Company Number: None

PATIENT
  Age: 73 Year
  Sex: Male
  Weight: 101 kg

DRUGS (1)
  1. INSULIN [Suspect]
     Active Substance: INSULIN NOS
     Route: 058
     Dates: start: 20160501, end: 20160703

REACTIONS (4)
  - Urticaria [None]
  - Pruritus [None]
  - Angioedema [None]
  - Swelling [None]

NARRATIVE: CASE EVENT DATE: 20160503
